FAERS Safety Report 8294006-2 (Version None)
Quarter: 2012Q2

REPORT INFORMATION
  Report Type: 
  Country: None (occurrence: None)
  Receive Date: 20120418
  Receipt Date: 20120409
  Transmission Date: 20120825
  Serious: Yes (Hospitalization)
  Sender: FDA-Public Use
  Company Number: JP-VERTEX PHARMACEUTICALS INC.-AE-2012-005200

PATIENT
  Age: 56 Year
  Sex: Male

DRUGS (11)
  1. URSO 250 [Concomitant]
     Route: 048
  2. ALDACTONE [Concomitant]
     Route: 048
  3. TELAVIC (TELAPREVIR) [Suspect]
     Route: 048
     Dates: start: 20120314
  4. RIBAVIRIN [Concomitant]
     Indication: HEPATITIS C
     Route: 048
  5. NEORAL [Concomitant]
     Route: 048
  6. PEGINTERFERON ALFA-2B [Concomitant]
     Indication: HEPATITIS C
     Route: 051
  7. LASIX [Concomitant]
     Route: 048
  8. NORVASC [Concomitant]
     Route: 048
  9. TELAVIC (TELAPREVIR) [Suspect]
     Indication: HEPATITIS C
     Route: 048
     Dates: start: 20120222, end: 20120225
  10. TELAVIC (TELAPREVIR) [Suspect]
     Route: 048
     Dates: start: 20120226
  11. MYCOPHENOLATE MOFETIL (CELLCEPT) [Concomitant]
     Route: 048

REACTIONS (1)
  - RENAL IMPAIRMENT [None]
